FAERS Safety Report 25956058 (Version 1)
Quarter: 2025Q4

REPORT INFORMATION
  Report Type: Spontaneous
  Country: US (occurrence: US)
  Receive Date: 20251024
  Receipt Date: 20251024
  Transmission Date: 20260117
  Serious: Yes (Hospitalization, Other)
  Sender: APOTEX
  Company Number: US-APOTEX-2025AP031297

PATIENT

DRUGS (3)
  1. GEMCITABINE [Suspect]
     Active Substance: GEMCITABINE
     Indication: Cholangiocarcinoma
     Dosage: 800 MILLIGRAM/SQ. METER ON DAYS 1 AND 8 OF A 21-DAY CYCLE
     Route: 042
  2. CISPLATIN [Suspect]
     Active Substance: CISPLATIN
     Indication: Cholangiocarcinoma
     Dosage: 25 MILLIGRAM/SQ. METER ON DAYS 1 AND 8 OF A 21-DAY CYCLE
     Route: 042
  3. PACLITAXEL [Suspect]
     Active Substance: PACLITAXEL
     Indication: Cholangiocarcinoma
     Dosage: 100 MILLIGRAM/SQ. METER ON DAYS 1 AND 8 OF A 21-DAY CYCLE
     Route: 042

REACTIONS (5)
  - Bacteraemia [Recovered/Resolved]
  - Pneumonia [Recovered/Resolved]
  - Aspergillus infection [Recovered/Resolved]
  - Acute respiratory failure [Recovered/Resolved]
  - Neutropenia [Recovered/Resolved]
